FAERS Safety Report 18344664 (Version 2)
Quarter: 2020Q4

REPORT INFORMATION
  Report Type: Spontaneous
  Country: IE (occurrence: IE)
  Receive Date: 20201005
  Receipt Date: 20201023
  Transmission Date: 20210114
  Serious: Yes (Hospitalization)
  Sender: FDA-Public Use
  Company Number: IE-TEVA-2020-IE-1835010

PATIENT
  Age: 76 Year
  Sex: Female
  Weight: 61 kg

DRUGS (7)
  1. DOXYCYCLINE (GENERIC) [Suspect]
     Active Substance: DOXYCYCLINE
     Indication: ANTIBIOTIC PROPHYLAXIS
     Dosage: UNIT DOSE : 100 MG,REGULAR MEDICATION NO CHANGES WITH IT RECENTLY
     Route: 048
     Dates: start: 20200703
  2. PREDNISOLONE (GENERIC) [Concomitant]
     Dosage: REGULAR MEDICATION NO CHANGES WITH IT RECENTLY
  3. LERCANIDIPINE (G) [Concomitant]
     Dosage: REGULAR MEDICATION NO CHANGES WITH IT RECENTLY
  4. ATORVASTATIN (GENERIC) [Concomitant]
     Active Substance: ATORVASTATIN
     Dosage: REGULAR MEDICATION NO CHANGES WITH IT RECENTLY
  5. ASPIRIN (GENERIC) [Concomitant]
     Active Substance: ASPIRIN
     Dosage: REGULAR MEDICATION NO CHANGES WITH IT RECENTLY
  6. TELMISARTAN (G) [Concomitant]
     Dosage: REGULAR MEDICATION NO CHANGES WITH IT RECENTLY
  7. PANTOPRAZOLE (GENERIC) [Concomitant]
     Dosage: REGULAR MEDICATION NO CHANGES WITH IT RECENTLY

REACTIONS (5)
  - Decreased appetite [Not Recovered/Not Resolved]
  - Nausea [Not Recovered/Not Resolved]
  - Lethargy [Not Recovered/Not Resolved]
  - Drug-induced liver injury [Not Recovered/Not Resolved]
  - Liver function test increased [Not Recovered/Not Resolved]

NARRATIVE: CASE EVENT DATE: 20200723
